FAERS Safety Report 21353697 (Version 3)
Quarter: 2022Q3

REPORT INFORMATION
  Report Type: Report from Study
  Country: ES (occurrence: None)
  Receive Date: 20220920
  Receipt Date: 20220929
  Transmission Date: 20221026
  Serious: Yes (Hospitalization)
  Sender: FDA-Public Use
  Company Number: ES-ROCHE-3159590

PATIENT
  Age: 41 Year
  Sex: Female
  Weight: 94.7 kg

DRUGS (13)
  1. ATEZOLIZUMAB [Suspect]
     Active Substance: ATEZOLIZUMAB
     Indication: Triple negative breast cancer
     Dosage: DOSE LAST STUDY DRUG ADMIN PRIOR AE IS 1200 MG ON 28/JUL/2022?ON DAY 1 OF EACH 21-DAY CYCLE.
     Route: 041
     Dates: start: 20220728
  2. SACITUZUMAB GOVITECAN [Suspect]
     Active Substance: SACITUZUMAB GOVITECAN
     Indication: Triple negative breast cancer
     Dosage: ON 04/AUG/2022, DOSE LAST STUDY DRUG ADMIN PRIOR AE WAS 956?ON DAYS 1 AND 8 OF EACH 21-DAY CYCLE.
     Route: 042
     Dates: start: 20220728
  3. ACETAMINOPHEN [Concomitant]
     Active Substance: ACETAMINOPHEN
     Indication: Premedication
     Route: 042
     Dates: start: 20220728, end: 20220728
  4. ACETAMINOPHEN [Concomitant]
     Active Substance: ACETAMINOPHEN
     Route: 042
     Dates: start: 20220804, end: 20220804
  5. GRANISETRON [Concomitant]
     Active Substance: GRANISETRON
     Indication: Premedication
     Route: 042
     Dates: start: 20220728, end: 20220728
  6. GRANISETRON [Concomitant]
     Active Substance: GRANISETRON
     Indication: Febrile neutropenia
     Route: 042
     Dates: start: 20220804, end: 20220804
  7. GRANISETRON [Concomitant]
     Active Substance: GRANISETRON
     Route: 042
     Dates: start: 20220810
  8. POLARAMINE [Concomitant]
     Active Substance: DEXCHLORPHENIRAMINE MALEATE
     Indication: Premedication
     Route: 042
     Dates: start: 20220728, end: 20220728
  9. POLARAMINE [Concomitant]
     Active Substance: DEXCHLORPHENIRAMINE MALEATE
     Route: 042
     Dates: start: 20220804, end: 20220804
  10. DOCETAXEL [Concomitant]
     Active Substance: DOCETAXEL
  11. CARBOPLATIN [Concomitant]
     Active Substance: CARBOPLATIN
  12. CAPECITABINE [Concomitant]
     Active Substance: CAPECITABINE
  13. OMEPRAZOLE [Concomitant]
     Active Substance: OMEPRAZOLE
     Route: 048
     Dates: start: 20220810, end: 20220823

REACTIONS (1)
  - Neutropenic colitis [Recovered/Resolved]

NARRATIVE: CASE EVENT DATE: 20220810
